FAERS Safety Report 9780131 (Version 1)
Quarter: 2013Q4

REPORT INFORMATION
  Report Type: Spontaneous
  Country: DE (occurrence: DE)
  Receive Date: 20131223
  Receipt Date: 20131223
  Transmission Date: 20140711
  Serious: Yes (Disabling)
  Sender: FDA-Public Use
  Company Number: DE-MERCK-1312DEU009542

PATIENT
  Age: 51 Year
  Sex: Female

DRUGS (9)
  1. JANUVIA [Suspect]
     Indication: TYPE 2 DIABETES MELLITUS
     Dosage: 50 MG, QD
     Route: 048
     Dates: start: 201105, end: 20131112
  2. SIMVASTATIN [Concomitant]
     Dosage: 20 MG, QD
     Route: 048
  3. HYDROCHLOROTHIAZIDE [Concomitant]
     Dosage: 25 MG, QD
     Route: 048
  4. GLIMEPIRIDE [Concomitant]
     Indication: TYPE 2 DIABETES MELLITUS
     Dosage: 0.5 MG, QD
     Route: 048
  5. BERLINSULIN H BASAL [Concomitant]
     Indication: TYPE 2 DIABETES MELLITUS
     Dosage: 8 IU, QD
     Route: 058
     Dates: start: 201008
  6. DEKRISTOL [Concomitant]
     Dosage: 1 X EVERY THREE WEEKS; IN WINTER 1X EVERY TWO WEEKS
     Route: 048
     Dates: start: 201008
  7. NAPROXEN [Concomitant]
     Indication: RHEUMATIC DISORDER
     Dosage: 250 MG, QD
     Route: 048
     Dates: end: 201305
  8. NAPROXEN [Concomitant]
     Dosage: 250 MG, PRN
     Route: 048
     Dates: start: 201305
  9. BUSCOPAN [Concomitant]
     Indication: RECTAL SPASM

REACTIONS (9)
  - Sensory disturbance [Recovering/Resolving]
  - Skin disorder [Recovering/Resolving]
  - Vasculitis [Recovering/Resolving]
  - Pain [Recovering/Resolving]
  - Oedema peripheral [Recovering/Resolving]
  - Weight increased [Recovering/Resolving]
  - Liver function test abnormal [Recovering/Resolving]
  - Burning sensation [Unknown]
  - Paraesthesia [Unknown]
